FAERS Safety Report 8609125-8 (Version None)
Quarter: 2012Q3

REPORT INFORMATION
  Report Type: 
  Country: None (occurrence: None)
  Receive Date: 20120821
  Receipt Date: 20120809
  Transmission Date: 20120928
  Serious: No
  Sender: FDA-Public Use
  Company Number: US-ASTRAZENECA-2012SE55960

PATIENT
  Age: 63 Year
  Sex: Female

DRUGS (3)
  1. TOPROL-XL [Suspect]
     Route: 048
  2. ATACAND [Suspect]
     Route: 048
  3. TOPROL-XL [Suspect]
     Route: 048

REACTIONS (6)
  - HYPERTENSION [None]
  - HEADACHE [None]
  - OFF LABEL USE [None]
  - DIZZINESS [None]
  - DIARRHOEA [None]
  - NAUSEA [None]
